FAERS Safety Report 24406358 (Version 1)
Quarter: 2024Q4

REPORT INFORMATION
  Report Type: Spontaneous
  Country: US (occurrence: None)
  Receive Date: 20241005
  Receipt Date: 20241005
  Transmission Date: 20250114
  Serious: Yes (Other)
  Sender: Public
  Company Number: None

PATIENT
  Age: 62 Year
  Sex: Male
  Weight: 85.5 kg

DRUGS (31)
  1. CINVANTI [Suspect]
     Active Substance: APREPITANT
     Indication: Nausea
     Dosage: OTHER FREQUENCY : 1,8 OF 21DAY CYCLE;?
     Route: 042
     Dates: start: 20240506, end: 20240903
  2. CINVANTI [Suspect]
     Active Substance: APREPITANT
     Indication: Vomiting
  3. ALLOPURINOL [Concomitant]
     Active Substance: ALLOPURINOL
  4. AMLODIPINE [Concomitant]
     Active Substance: AMLODIPINE BESYLATE
  5. ELIQUIS [Concomitant]
     Active Substance: APIXABAN
  6. CINVANTI [Concomitant]
     Active Substance: APREPITANT
  7. ASPIRIN [Concomitant]
     Active Substance: ASPIRIN
  8. CARBOPLATIN [Concomitant]
     Active Substance: CARBOPLATIN
  9. CISPLATIN [Concomitant]
     Active Substance: CISPLATIN
  10. CYANOCOBALAMIN (VITAMIN B12) [Concomitant]
  11. DEXAMETHASONE [Concomitant]
     Active Substance: DEXAMETHASONE
  12. DEXTROAMPHETAMINE SACCHARATE, AMPHETAMINE ASPARTATE, DEXTROAMPHETAMINE [Concomitant]
     Active Substance: AMPHETAMINE ASPARTATE\AMPHETAMINE SULFATE\DEXTROAMPHETAMINE SACCHARATE\DEXTROAMPHETAMINE SULFATE
  13. DURVALUMAB [Concomitant]
     Active Substance: DURVALUMAB
  14. LOVENOX [Concomitant]
     Active Substance: ENOXAPARIN SODIUM
  15. ESCITALOPRAM [Concomitant]
     Active Substance: ESCITALOPRAM OXALATE
  16. PEPCID [Concomitant]
     Active Substance: FAMOTIDINE
  17. GABAPENTIN [Concomitant]
     Active Substance: GABAPENTIN
  18. GEMCITABINE [Concomitant]
     Active Substance: GEMCITABINE
  19. ISOSORBIDE MONONITRATE [Concomitant]
     Active Substance: ISOSORBIDE MONONITRATE
  20. MAGNESIUM SULFATE [Concomitant]
     Active Substance: MAGNESIUM SULFATE
  21. METHOCARBAMOL [Concomitant]
     Active Substance: METHOCARBAMOL
  22. OLANZAPINE [Concomitant]
     Active Substance: OLANZAPINE
  23. ONDANSETRON [Concomitant]
     Active Substance: ONDANSETRON
  24. OXYCODONE [Concomitant]
     Active Substance: OXYCODONE
  25. PALONOSETRON (ALOXI) [Concomitant]
  26. PANTAPRAZOLE (PROTONIX) [Concomitant]
  27. PEGRIFASTIM (NEULASTIN ONPRO) [Concomitant]
  28. PROCHLORPERAZINE (COMPAZINE) [Concomitant]
  29. ROPINROLE (REQUIP) [Concomitant]
  30. SPIRONOLACTONE (ALDACTONE) [Concomitant]
  31. TAMSILOSIN (FLOMAX) [Concomitant]

REACTIONS (1)
  - Thrombosis [None]

NARRATIVE: CASE EVENT DATE: 20240624
